FAERS Safety Report 11102519 (Version 1)
Quarter: 2015Q2

REPORT INFORMATION
  Report Type: Spontaneous
  Country: JP (occurrence: JP)
  Receive Date: 20150511
  Receipt Date: 20150511
  Transmission Date: 20150821
  Serious: Yes (Death, Other)
  Sender: FDA-Public Use
  Company Number: JP-CIPLA LTD.-2015JP03678

PATIENT

DRUGS (9)
  1. ETOPOSIDE INJECTION 6 MG/ ML [Suspect]
     Active Substance: ETOPOSIDE
     Dosage: 100 MG/M2, UNK, ONB DAYS 1, 2 AND 3
     Route: 065
  2. IRINOTECAN [Suspect]
     Active Substance: IRINOTECAN
     Indication: NEUROENDOCRINE CARCINOMA
     Dosage: 60 MG/M2, UNK, ON DAYS 1, 8
     Route: 065
     Dates: start: 200906
  3. ETOPOSIDE INJECTION 6 MG/ ML [Suspect]
     Active Substance: ETOPOSIDE
     Dosage: 80 MG/M2, DAY 1 TO 3, EVERY 4 WEEKS, FOR 2 CYCLES
  4. AMRUBICIN [Suspect]
     Active Substance: AMRUBICIN
     Indication: METASTASES TO LIVER
  5. CISPLATIN. [Suspect]
     Active Substance: CISPLATIN
     Indication: NEUROENDOCRINE CARCINOMA
     Dosage: 60 MG/M2, UNK, ON DAY 1
     Route: 065
     Dates: start: 200906
  6. CARBOPLATIN. [Suspect]
     Active Substance: CARBOPLATIN
     Indication: NEUROENDOCRINE CARCINOMA
     Dosage: AUC 4, DAY 1
     Route: 065
  7. CISPLATIN. [Suspect]
     Active Substance: CISPLATIN
     Dosage: 80 MG/M2 ON DAY 1
  8. AMRUBICIN [Suspect]
     Active Substance: AMRUBICIN
     Indication: METASTATIC LYMPHOMA
     Dosage: 40 MG/M2, UNK, DAYS 1 TO 3, EVERY 3 WEEKS, FOR 6 CYCLES
     Route: 065
  9. AMRUBICIN [Suspect]
     Active Substance: AMRUBICIN
     Indication: METASTASES TO BONE

REACTIONS (6)
  - Metastasis [Unknown]
  - Neoplasm progression [Unknown]
  - Oropharyngeal pain [Unknown]
  - Neoplasm malignant [Fatal]
  - Stomatitis [Unknown]
  - Neutropenia [Recovered/Resolved]
